FAERS Safety Report 11505073 (Version 1)
Quarter: 2015Q3

REPORT INFORMATION
  Report Type: Spontaneous
  Country: US (occurrence: US)
  Receive Date: 20150915
  Receipt Date: 20150915
  Transmission Date: 20151125
  Serious: No
  Sender: FDA-Public Use
  Company Number: US-ROCHE-773256

PATIENT
  Sex: Male

DRUGS (2)
  1. PEGASYS [Suspect]
     Active Substance: PEGINTERFERON ALFA-2A
     Indication: HEPATITIS
     Route: 065
     Dates: start: 20100924, end: 20110324
  2. RIBAVIRIN. [Suspect]
     Active Substance: RIBAVIRIN
     Indication: HEPATITIS C
     Route: 065
     Dates: start: 20100924, end: 20110324

REACTIONS (4)
  - Pyrexia [Unknown]
  - Nasopharyngitis [Unknown]
  - Constipation [Not Recovered/Not Resolved]
  - Social avoidant behaviour [Not Recovered/Not Resolved]
